FAERS Safety Report 18259749 (Version 18)
Quarter: 2024Q2

REPORT INFORMATION
  Report Type: Report from Study
  Country: US (occurrence: US)
  Receive Date: 20200912
  Receipt Date: 20240508
  Transmission Date: 20240715
  Serious: Yes (Hospitalization, Other)
  Sender: FDA-Public Use
  Company Number: US-SHIRE-US202029708

PATIENT
  Age: 76 Year
  Sex: Female
  Weight: 83 kg

DRUGS (23)
  1. HUMAN IMMUNOGLOBULIN G [Suspect]
     Active Substance: HUMAN IMMUNOGLOBULIN G
     Indication: Immunodeficiency common variable
     Dosage: 11 GRAM, 1/WEEK
     Route: 058
     Dates: start: 20120222
  2. HUMAN IMMUNOGLOBULIN G [Suspect]
     Active Substance: HUMAN IMMUNOGLOBULIN G
     Dosage: 11 GRAM, 1/WEEK
     Route: 058
     Dates: start: 20120228
  3. HUMAN IMMUNOGLOBULIN G [Suspect]
     Active Substance: HUMAN IMMUNOGLOBULIN G
     Dosage: 11 GRAM, QD
     Route: 058
  4. HUMAN IMMUNOGLOBULIN G [Suspect]
     Active Substance: HUMAN IMMUNOGLOBULIN G
     Dosage: 11 GRAM, 1/WEEK
     Route: 058
  5. AMOXICILLIN [Suspect]
     Active Substance: AMOXICILLIN
     Indication: Urinary tract infection
     Dosage: UNK
     Route: 065
  6. GEMTESA [Suspect]
     Active Substance: VIBEGRON
     Indication: Product used for unknown indication
     Dosage: UNK
     Route: 065
  7. FOSFOMYCIN [Suspect]
     Active Substance: FOSFOMYCIN
     Indication: Product used for unknown indication
     Dosage: UNK
     Route: 065
  8. DIPHENHYDRAMINE [Concomitant]
     Active Substance: DIPHENHYDRAMINE
     Dosage: UNK
     Route: 065
  9. NASACORT [Concomitant]
     Active Substance: TRIAMCINOLONE ACETONIDE
     Dosage: UNK
     Route: 065
  10. LIDOCAINE\PRILOCAINE [Concomitant]
     Active Substance: LIDOCAINE\PRILOCAINE
     Dosage: UNK
     Route: 065
  11. EPINEPHRINE [Concomitant]
     Active Substance: EPINEPHRINE
     Dosage: UNK
     Route: 065
  12. ACETAMINOPHEN [Concomitant]
     Active Substance: ACETAMINOPHEN
     Dosage: UNK
     Route: 065
  13. AUGMENTIN [Concomitant]
     Active Substance: AMOXICILLIN\CLAVULANATE POTASSIUM
     Dosage: UNK
     Route: 065
  14. LORATADINE [Concomitant]
     Active Substance: LORATADINE
     Dosage: UNK
     Route: 065
  15. LEVOTHYROXINE [Concomitant]
     Active Substance: LEVOTHYROXINE\LEVOTHYROXINE SODIUM
     Dosage: UNK
     Route: 065
  16. PROAIR HFA [Concomitant]
     Active Substance: ALBUTEROL SULFATE
     Dosage: UNK
     Route: 065
  17. LIPITOR [Concomitant]
     Active Substance: ATORVASTATIN CALCIUM
     Dosage: UNK
     Route: 065
  18. DEXILANT [Concomitant]
     Active Substance: DEXLANSOPRAZOLE
     Dosage: UNK
     Route: 065
  19. DIOVAN HCT [Concomitant]
     Active Substance: HYDROCHLOROTHIAZIDE\VALSARTAN
     Dosage: UNK
     Route: 065
  20. ESTRADIOL [Concomitant]
     Active Substance: ESTRADIOL
     Dosage: UNK
     Route: 065
  21. DOXYCYCLINE [Concomitant]
     Active Substance: DOXYCYCLINE
     Dosage: UNK
     Route: 065
  22. DOXYCYCLINE HYCLATE [Concomitant]
     Active Substance: DOXYCYCLINE HYCLATE
     Dosage: UNK
     Route: 065
  23. DIPHENHYDRAMINE HYDROCHLORIDE [Concomitant]
     Active Substance: DIPHENHYDRAMINE HYDROCHLORIDE
     Dosage: UNK

REACTIONS (19)
  - Diverticulitis [Recovering/Resolving]
  - Blood sodium abnormal [Unknown]
  - Cataract [Unknown]
  - Throat irritation [Unknown]
  - Bronchitis [Unknown]
  - Urinary tract infection [Not Recovered/Not Resolved]
  - Cystitis [Unknown]
  - Constipation [Unknown]
  - Drug hypersensitivity [Unknown]
  - Tooth infection [Unknown]
  - Application site haemorrhage [Unknown]
  - Application site bruise [Unknown]
  - Mass [Unknown]
  - Malaise [Unknown]
  - Headache [Unknown]
  - Nausea [Unknown]
  - Contusion [Unknown]
  - Product dose omission issue [Unknown]
  - Inappropriate schedule of product administration [Unknown]

NARRATIVE: CASE EVENT DATE: 20221219
